FAERS Safety Report 13522672 (Version 1)
Quarter: 2017Q2

REPORT INFORMATION
  Report Type: Report from Study
  Country: ES (occurrence: ES)
  Receive Date: 20170508
  Receipt Date: 20170508
  Transmission Date: 20170830
  Serious: Yes (Hospitalization, Other)
  Sender: FDA-Public Use
  Company Number: ES-JNJFOC-20151003893

PATIENT
  Age: 36 Year
  Sex: Male
  Weight: 70 kg

DRUGS (8)
  1. S/GSK1265744 (HIV INTEGRASE INHIBITOR) [Suspect]
     Active Substance: CABOTEGRAVIR
     Indication: HIV INFECTION
     Route: 048
     Dates: start: 20140611, end: 20141029
  2. PARACETAMOL [Concomitant]
     Active Substance: ACETAMINOPHEN
     Route: 065
     Dates: start: 20151002, end: 20151006
  3. TMC278 LA [Suspect]
     Active Substance: RILPIVIRINE
     Indication: HIV INFECTION
     Dosage: REGIMEN#1
     Route: 030
     Dates: start: 20141029
  4. RILPIVIRINE HYDROCHLORIDE [Suspect]
     Active Substance: RILPIVIRINE HYDROCHLORIDE
     Indication: HIV INFECTION
     Route: 048
     Dates: start: 20141001, end: 20141029
  5. S/GSK1265744 (HIV INTEGRASE INHIBITOR) [Suspect]
     Active Substance: CABOTEGRAVIR
     Indication: HIV INFECTION
     Route: 030
     Dates: start: 20141029, end: 20141029
  6. OMEPRAZOLE. [Concomitant]
     Active Substance: OMEPRAZOLE
     Route: 065
     Dates: start: 20151002, end: 20151006
  7. S/GSK1265744 (HIV INTEGRASE INHIBITOR) [Suspect]
     Active Substance: CABOTEGRAVIR
     Indication: HIV INFECTION
     Route: 030
     Dates: start: 20141125
  8. METAMIZOLE [Concomitant]
     Active Substance: METAMIZOLE
     Route: 065
     Dates: start: 20151002, end: 20151004

REACTIONS (3)
  - Portal vein thrombosis [Not Recovered/Not Resolved]
  - Mesenteric vein thrombosis [Not Recovered/Not Resolved]
  - Splenic vein thrombosis [Not Recovered/Not Resolved]

NARRATIVE: CASE EVENT DATE: 20150921
